FAERS Safety Report 13618154 (Version 2)
Quarter: 2017Q3

REPORT INFORMATION
  Report Type: Report from Study
  Country: DE (occurrence: DE)
  Receive Date: 20170606
  Receipt Date: 20170707
  Transmission Date: 20171127
  Serious: Yes (Hospitalization)
  Sender: FDA-Public Use
  Company Number: DE-B.I. PHARMACEUTICALS,INC./RIDGEFIELD-2017-BI-030203

PATIENT
  Age: 70 Year
  Sex: Female
  Weight: 57 kg

DRUGS (2)
  1. CIPROFLOXACIN. [Concomitant]
     Active Substance: CIPROFLOXACIN
     Indication: PRODUCT USED FOR UNKNOWN INDICATION
     Route: 042
     Dates: start: 20170526
  2. AFATINIB [Suspect]
     Active Substance: AFATINIB
     Indication: NON-SMALL CELL LUNG CANCER
     Route: 065
     Dates: start: 20170512

REACTIONS (1)
  - Cystitis [Recovering/Resolving]

NARRATIVE: CASE EVENT DATE: 201705
